FAERS Safety Report 15967537 (Version 1)
Quarter: 2019Q1

REPORT INFORMATION
  Report Type: Spontaneous
  Country: US (occurrence: US)
  Receive Date: 20190124
  Receipt Date: 20190124
  Transmission Date: 20190418
  Serious: No
  Sender: FDA-Public Use
  Company Number: None

PATIENT
  Age: 27 Year
  Sex: Male
  Weight: 74.84 kg

DRUGS (1)
  1. CIPROFLOXACIN. [Suspect]
     Active Substance: CIPROFLOXACIN
     Indication: INFECTION
     Dosage: ?          QUANTITY:500 MG MILLIGRAM(S);?
     Route: 048
     Dates: start: 20181211, end: 20181211

REACTIONS (5)
  - Pyrexia [None]
  - Seizure [None]
  - Gait disturbance [None]
  - Muscle spasms [None]
  - Hypoaesthesia [None]

NARRATIVE: CASE EVENT DATE: 20181211
